FAERS Safety Report 4844237-6 (Version None)
Quarter: 2005Q4

REPORT INFORMATION
  Report Type: 
  Country: None (occurrence: None)
  Receive Date: 20051202
  Receipt Date: 20051122
  Transmission Date: 20060501
  Serious: Yes (Other)
  Sender: FDA-Public Use
  Company Number: ZA-ABBOTT-05P-143-0318111-00

PATIENT

DRUGS (1)
  1. ULTANE [Suspect]
     Indication: APPENDICECTOMY
     Route: 055
     Dates: start: 20051121, end: 20051121

REACTIONS (1)
  - CYANOSIS [None]
